FAERS Safety Report 5788760-9 (Version None)
Quarter: 2008Q2

REPORT INFORMATION
  Report Type: 
  Country: None (occurrence: None)
  Receive Date: 20080623
  Receipt Date: 20080613
  Transmission Date: 20081010
  Serious: Yes (Hospitalization)
  Sender: FDA-Public Use
  Company Number: 2007BI001367

PATIENT
  Age: 42 Year
  Sex: Female

DRUGS (1)
  1. AVONEX [Suspect]
     Indication: MULTIPLE SCLEROSIS
     Dosage: 30 UG;QW;IM
     Route: 030
     Dates: start: 19960101

REACTIONS (6)
  - COLOSTOMY [None]
  - HAEMORRHAGE [None]
  - JOINT INJURY [None]
  - LEG AMPUTATION [None]
  - LIMB INJURY [None]
  - ROAD TRAFFIC ACCIDENT [None]
